FAERS Safety Report 7418104-8 (Version None)
Quarter: 2011Q2

REPORT INFORMATION
  Report Type: 
  Country: None (occurrence: None)
  Receive Date: 20110412
  Receipt Date: 20110412
  Transmission Date: 20111010
  Serious: Yes (Other)
  Sender: FDA-Public Use
  Company Number: None

PATIENT
  Sex: Female
  Weight: 70.5 kg

DRUGS (1)
  1. PRAVASTATIN SODIUM [Suspect]
     Indication: BLOOD CHOLESTEROL INCREASED
     Dosage: 20MG NIGHTLY
     Dates: end: 20110320

REACTIONS (4)
  - DRY SKIN [None]
  - MYALGIA [None]
  - STOMATITIS [None]
  - OEDEMA MOUTH [None]
